FAERS Safety Report 13909660 (Version 4)
Quarter: 2017Q4

REPORT INFORMATION
  Report Type: Spontaneous
  Country: US (occurrence: US)
  Receive Date: 20170828
  Receipt Date: 20171122
  Transmission Date: 20180320
  Serious: No
  Sender: FDA-Public Use
  Company Number: US-PFIZER INC-2017367087

PATIENT
  Age: 41 Year
  Sex: Male
  Weight: 104 kg

DRUGS (1)
  1. ADVIL [Suspect]
     Active Substance: IBUPROFEN
     Dosage: 2 LIQUIGELS, AS NEEDED, (2-3IMES A WEEK)
     Route: 048

REACTIONS (4)
  - Accidental exposure to product [Recovering/Resolving]
  - Product taste abnormal [Recovering/Resolving]
  - Dysgeusia [Recovering/Resolving]
  - Product storage error [Unknown]

NARRATIVE: CASE EVENT DATE: 20170823
